FAERS Safety Report 24336789 (Version 1)
Quarter: 2024Q3

REPORT INFORMATION
  Report Type: Spontaneous
  Country: BR (occurrence: BR)
  Receive Date: 20240919
  Receipt Date: 20240919
  Transmission Date: 20241016
  Serious: Yes (Other)
  Sender: CELLTRION
  Company Number: BR-CELLTRION INC.-2023BR004856

PATIENT

DRUGS (6)
  1. INFLIXIMAB [Suspect]
     Active Substance: INFLIXIMAB
     Indication: Crohn^s disease
     Dosage: 3 AMPOULES
     Dates: start: 20220804
  2. INFLIXIMAB [Suspect]
     Active Substance: INFLIXIMAB
     Dosage: 3 AMPOULES EVERY 8 WEEKS
     Route: 042
     Dates: start: 20220929
  3. INFLIXIMAB [Suspect]
     Active Substance: INFLIXIMAB
     Dosage: 4 AMPOULES EVERY 8 WEEKS, TWO INFUSIONS
     Route: 042
     Dates: start: 20220929
  4. INFLIXIMAB [Suspect]
     Active Substance: INFLIXIMAB
     Dosage: 3 AMPOULES
     Dates: start: 20230302
  5. INFLIXIMAB [Suspect]
     Active Substance: INFLIXIMAB
     Dosage: UNK
     Route: 042
     Dates: start: 20230905
  6. AZATHIOPRINE [Concomitant]
     Active Substance: AZATHIOPRINE
     Indication: Crohn^s disease
     Dosage: 3 TABLETS A DAY
     Route: 048

REACTIONS (6)
  - Crohn^s disease [Unknown]
  - Weight increased [Unknown]
  - Inflammation [Unknown]
  - Intentional dose omission [Unknown]
  - Maternal exposure during pregnancy [Unknown]
  - Intentional product use issue [Unknown]

NARRATIVE: CASE EVENT DATE: 20230905
